FAERS Safety Report 20970093 (Version 2)
Quarter: 2022Q3

REPORT INFORMATION
  Report Type: Spontaneous
  Country: CA (occurrence: CA)
  Receive Date: 20220616
  Receipt Date: 20220701
  Transmission Date: 20221026
  Serious: Yes (Hospitalization, Other)
  Sender: FDA-Public Use
  Company Number: CA-GILEAD-2022-0585805

PATIENT
  Age: 65 Year
  Sex: Male

DRUGS (20)
  1. BIKTARVY [Suspect]
     Active Substance: BICTEGRAVIR SODIUM\EMTRICITABINE\TENOFOVIR ALAFENAMIDE FUMARATE
     Indication: HIV infection
     Dosage: 1 DOSAGE FORM, QD
     Route: 033
     Dates: start: 202102
  2. SILODOSIN AB [Concomitant]
  3. PANTOPRAZOLE SODIUM [Concomitant]
     Active Substance: PANTOPRAZOLE SODIUM
  4. SPIRIVA [Concomitant]
     Active Substance: TIOTROPIUM BROMIDE MONOHYDRATE
  5. ALBUTEROL [Concomitant]
     Active Substance: ALBUTEROL
  6. VITAMINS [Concomitant]
     Active Substance: VITAMINS
  7. FUROSEMIDE [Concomitant]
     Active Substance: FUROSEMIDE
  8. CEPHALEXIN [Concomitant]
     Active Substance: CEPHALEXIN
  9. MIDODRINE ARROW [Concomitant]
  10. DEXMEDETOMIDINE HYDROCHLORIDE [Concomitant]
     Active Substance: DEXMEDETOMIDINE HYDROCHLORIDE
  11. IPRATROPIUM BROMIDE [Concomitant]
     Active Substance: IPRATROPIUM BROMIDE
  12. NOREPINEPHRINE [NOREPINEPHRINE BITARTRATE] [Concomitant]
  13. POLYETHYLENE GLYCOLS [Concomitant]
     Active Substance: POLYETHYLENE GLYCOLS
  14. ALBUTEROL SULFATE [Concomitant]
     Active Substance: ALBUTEROL SULFATE
  15. ATORVASTATIN CALCIUM [Concomitant]
     Active Substance: ATORVASTATIN CALCIUM
  16. ASA 404 [Concomitant]
  17. CLOPIDOGREL BESILATE [Concomitant]
     Active Substance: CLOPIDOGREL BESILATE
  18. VITAMIN D NOS [Concomitant]
     Active Substance: VITAMIN D NOS
  19. NICOTINE [Concomitant]
     Active Substance: NICOTINE
  20. ENOXAPARIN [Concomitant]
     Active Substance: ENOXAPARIN

REACTIONS (13)
  - General physical health deterioration [Unknown]
  - Acute myocardial infarction [Unknown]
  - Alcohol poisoning [Unknown]
  - Withdrawal syndrome [Unknown]
  - Ventricular tachycardia [Unknown]
  - Cerebrovascular accident [Unknown]
  - Pulmonary embolism [Unknown]
  - Pharyngeal haemorrhage [Unknown]
  - Delirium [Unknown]
  - Hypoxia [Unknown]
  - Dysphagia [Unknown]
  - Product administration error [Unknown]
  - Product administration error [Unknown]

NARRATIVE: CASE EVENT DATE: 20220601
